FAERS Safety Report 8608256-6 (Version None)
Quarter: 2012Q3

REPORT INFORMATION
  Report Type: 
  Country: None (occurrence: None)
  Receive Date: 20120808
  Receipt Date: 20120730
  Transmission Date: 20120928
  Serious: Yes (Hospitalization)
  Sender: FDA-Public Use
  Company Number: B0820599A

PATIENT
  Age: 63 Year
  Sex: Female

DRUGS (8)
  1. ZOVIRAX [Suspect]
     Indication: HERPES ZOSTER
     Dosage: FVE TIMES PER DAY / TOPICAL
     Route: 061
  2. METOPROLOL TARTRATE [Concomitant]
  3. ALFACALCIDOL [Concomitant]
  4. DILTIAZEM HCL [Concomitant]
  5. EPOGEN [Concomitant]
  6. ACYCLOVIR [Suspect]
     Indication: HERPES ZOSTER
     Dosage: 400 MG / FOUR TIMES PER DAY / ORAL
     Route: 048
  7. ASPIRIN [Concomitant]
  8. CALCIUM CARBONATE [Concomitant]

REACTIONS (5)
  - MENTAL STATUS CHANGES [None]
  - STUPOR [None]
  - HAEMOGLOBIN DECREASED [None]
  - BLOOD PRESSURE INCREASED [None]
  - TOXIC ENCEPHALOPATHY [None]
